FAERS Safety Report 13941900 (Version 1)
Quarter: 2017Q3

REPORT INFORMATION
  Report Type: Spontaneous
  Country: US (occurrence: None)
  Receive Date: 20170905
  Receipt Date: 20170905
  Transmission Date: 20171127
  Serious: Yes (Hospitalization)
  Sender: FDA-Public Use
  Company Number: None

PATIENT
  Age: 68 Year
  Sex: Male
  Weight: 76.5 kg

DRUGS (1)
  1. MEMANTINE HYDROCHLORIDE. [Suspect]
     Active Substance: MEMANTINE HYDROCHLORIDE
     Dates: end: 20170509

REACTIONS (9)
  - Pneumocephalus [None]
  - Wound drainage [None]
  - Neurotoxicity [None]
  - Muscular weakness [None]
  - Somnolence [None]
  - Rash [None]
  - Lethargy [None]
  - Acute kidney injury [None]
  - Pneumonia aspiration [None]

NARRATIVE: CASE EVENT DATE: 20170429
